FAERS Safety Report 17071328 (Version 1)
Quarter: 2019Q4

REPORT INFORMATION
  Report Type: Spontaneous
  Country: US (occurrence: US)
  Receive Date: 20191125
  Receipt Date: 20191125
  Transmission Date: 20200122
  Serious: No
  Sender: FDA-Public Use
  Company Number: US-ROCHE-2283587

PATIENT
  Age: 46 Year
  Sex: Female
  Weight: 93.98 kg

DRUGS (1)
  1. TAMIFLU [Suspect]
     Active Substance: OSELTAMIVIR PHOSPHATE
     Indication: INFLUENZA
     Route: 065
     Dates: start: 20190311, end: 20190312

REACTIONS (4)
  - Bone contusion [Not Recovered/Not Resolved]
  - Cough [Not Recovered/Not Resolved]
  - Vaginal haemorrhage [Recovering/Resolving]
  - Oral herpes [Not Recovered/Not Resolved]

NARRATIVE: CASE EVENT DATE: 20190311
